FAERS Safety Report 5749220-4 (Version None)
Quarter: 2008Q2

REPORT INFORMATION
  Report Type: 
  Country: None (occurrence: None)
  Receive Date: 20080522
  Receipt Date: 20080502
  Transmission Date: 20081010
  Serious: Yes (Hospitalization)
  Sender: FDA-Public Use
  Company Number: 920#8#2008-00007

PATIENT
  Age: 43 Year
  Sex: Male

DRUGS (2)
  1. NIFEDIPINE [Suspect]
     Indication: DRUG USE FOR UNKNOWN INDICATION
  2. ATENOLOL [Concomitant]

REACTIONS (4)
  - HEART RATE INCREASED [None]
  - LABILE BLOOD PRESSURE [None]
  - NEUROSIS [None]
  - PHAEOCHROMOCYTOMA [None]
